FAERS Safety Report 16373949 (Version 1)
Quarter: 2019Q2

REPORT INFORMATION
  Report Type: Spontaneous
  Country: US (occurrence: US)
  Receive Date: 20190530
  Receipt Date: 20190530
  Transmission Date: 20190711
  Serious: No
  Sender: FDA-Public Use
  Company Number: US-BRAINTREE LABORATORIES-190194

PATIENT
  Sex: Female

DRUGS (1)
  1. PEG-3350, SODIUM CHLORIDE, SODIUM BICARBONATE AND POTASSIUM CHLORIDE F [Suspect]
     Active Substance: POLYETHYLENE GLYCOL 3350\POTASSIUM CHLORIDE\SODIUM BICARBONATE\SODIUM CHLORIDE
     Indication: COLONOSCOPY
     Route: 065
     Dates: start: 20190327, end: 20190328

REACTIONS (7)
  - Proctalgia [None]
  - Rash erythematous [None]
  - Anal pruritus [None]
  - Wrong technique in product usage process [None]
  - Decreased appetite [None]
  - Thirst decreased [None]
  - Anorectal discomfort [None]
